FAERS Safety Report 6546977-X (Version None)
Quarter: 2010Q1

REPORT INFORMATION
  Report Type: 
  Country: None (occurrence: None)
  Receive Date: 20100122
  Receipt Date: 20100118
  Transmission Date: 20100710
  Serious: Yes (Other)
  Sender: FDA-Public Use
  Company Number: A0840577A

PATIENT
  Sex: Male
  Weight: 100 kg

DRUGS (1)
  1. AVANDIA [Suspect]
     Indication: DIABETES MELLITUS
     Dosage: 4MG TWICE PER DAY
     Route: 048
     Dates: start: 19990101, end: 20080101

REACTIONS (5)
  - ARRHYTHMIA [None]
  - BLINDNESS UNILATERAL [None]
  - CARDIAC FAILURE CONGESTIVE [None]
  - HEART VALVE INCOMPETENCE [None]
  - RENAL DISORDER [None]
